FAERS Safety Report 7547451-4 (Version None)
Quarter: 2011Q2

REPORT INFORMATION
  Report Type: 
  Country: None (occurrence: None)
  Receive Date: 20110614
  Receipt Date: 20110601
  Transmission Date: 20111010
  Serious: Yes (Life-Threatening, Hospitalization, Disabling)
  Sender: FDA-Public Use
  Company Number: GB-UCBSA-034409

PATIENT
  Age: 72 Year
  Sex: Female

DRUGS (10)
  1. METFORMIN HCL [Concomitant]
  2. ALENDRONATE SODIUM [Concomitant]
  3. CLOPIDOGREL HYDROGEN SULPHATE [Concomitant]
  4. CALCICHEW D3 [Concomitant]
  5. CERTOLIZUMAB PEGOL [Suspect]
     Indication: RHEUMATOID ARTHRITIS
     Route: 058
     Dates: start: 20110216, end: 20110510
  6. FOLIC ACID [Concomitant]
  7. SIMVASTATIN [Concomitant]
  8. METHOTREXATE [Concomitant]
  9. OMEPRAZOLE [Concomitant]
  10. PREDNISOLONE [Concomitant]

REACTIONS (7)
  - PYREXIA [None]
  - PNEUMONITIS [None]
  - RALES [None]
  - COUGH [None]
  - HYPOXIA [None]
  - DYSPNOEA [None]
  - TACHYPNOEA [None]
